FAERS Safety Report 13590943 (Version 1)
Quarter: 2017Q2

REPORT INFORMATION
  Report Type: Spontaneous
  Country: US (occurrence: US)
  Receive Date: 20170517
  Receipt Date: 20170517
  Transmission Date: 20170830
  Serious: No
  Sender: FDA-Public Use
  Company Number: None

PATIENT
  Age: 39 Year
  Sex: Female
  Weight: 54 kg

DRUGS (1)
  1. HYDROQUINONE. [Suspect]
     Active Substance: HYDROQUINONE
     Indication: SKIN DISCOLOURATION
     Dates: start: 20170517, end: 20170517

REACTIONS (2)
  - Skin discolouration [None]
  - Drug effect variable [None]
